FAERS Safety Report 5325730-9 (Version None)
Quarter: 2007Q2

REPORT INFORMATION
  Report Type: 
  Country: None (occurrence: None)
  Receive Date: 20070509
  Receipt Date: 20070430
  Transmission Date: 20071010
  Serious: Yes (Other)
  Sender: FDA-Public Use
  Company Number: 2007SP008334

PATIENT
  Age: 65 Year
  Sex: Female
  Weight: 50.8029 kg

DRUGS (10)
  1. PEG-INTRON (PEGINTERFERON ALFA-2B) [Suspect]
     Indication: HEPATITIS C
     Dosage: SC
     Route: 058
     Dates: start: 20060716, end: 20061228
  2. RIBAVIRIN [Suspect]
     Indication: HEPATITIS C
     Dosage: PO
     Route: 048
     Dates: start: 20060716, end: 20061228
  3. BUTALBITAL W/ASPIRIN, CAFFEINE (CON.) [Concomitant]
  4. DIGOXIN /00545901/ (CON.) [Concomitant]
  5. GARLIC (CON.) [Concomitant]
  6. MULTIVITAMINS (CON.) [Concomitant]
  7. PROCARDIA XL (CON.) [Concomitant]
  8. VIOXX (CON.) [Concomitant]
  9. VITAMIN C /00008001/ (CON.) [Concomitant]
  10. VITAMNIN E /00110501/ (CON.) [Concomitant]

REACTIONS (7)
  - BLOOD GLUCOSE DECREASED [None]
  - BURNING SENSATION [None]
  - CARDIAC FAILURE CONGESTIVE [None]
  - HEART RATE DECREASED [None]
  - HYPOTENSION [None]
  - LOSS OF CONSCIOUSNESS [None]
  - PAIN IN EXTREMITY [None]
